FAERS Safety Report 16674214 (Version 3)
Quarter: 2021Q4

REPORT INFORMATION
  Report Type: Spontaneous
  Country: US (occurrence: US)
  Receive Date: 20190806
  Receipt Date: 20211105
  Transmission Date: 20220303
  Serious: Yes (Other)
  Sender: FDA-Public Use
  Company Number: US-ALLERGAN-1932087US

PATIENT
  Sex: Female

DRUGS (2)
  1. OZURDEX [Suspect]
     Active Substance: DEXAMETHASONE
     Indication: Macular oedema
     Dosage: 0.7 MG, SINGLE
     Route: 031
  2. ACETAMINOPHEN [Concomitant]
     Active Substance: ACETAMINOPHEN
     Indication: Eye pain
     Dosage: UNK

REACTIONS (11)
  - Cytomegalovirus chorioretinitis [Recovering/Resolving]
  - Optic nerve sheath haemorrhage [Recovering/Resolving]
  - Conjunctival hyperaemia [Recovering/Resolving]
  - Papilloedema [Recovering/Resolving]
  - Necrotising retinitis [Unknown]
  - Intraocular pressure increased [Unknown]
  - Eye swelling [Unknown]
  - Visual acuity reduced [Recovering/Resolving]
  - Off label use [Unknown]
  - Visual impairment [Unknown]
  - Eye pain [Unknown]
